FAERS Safety Report 10571346 (Version 1)
Quarter: 2014Q4

REPORT INFORMATION
  Report Type: Spontaneous
  Country: US (occurrence: US)
  Receive Date: 20141107
  Receipt Date: 20141107
  Transmission Date: 20150529
  Serious: Yes (Hospitalization, Other)
  Sender: FDA-Public Use
  Company Number: US-GLAXOSMITHKLINE-US2014GSK016885

PATIENT
  Sex: Female

DRUGS (2)
  1. AVANDIA [Suspect]
     Active Substance: ROSIGLITAZONE MALEATE
     Indication: DIABETES MELLITUS
     Dosage: UNK
     Route: 048
     Dates: start: 20040310
  2. AVANDAMET [Suspect]
     Active Substance: METFORMIN HYDROCHLORIDE\ROSIGLITAZONE MALEATE
     Indication: DIABETES MELLITUS
     Dosage: UNK, BID
     Route: 048
     Dates: start: 20030923, end: 20040919

REACTIONS (4)
  - Myocardial infarction [Unknown]
  - Supraventricular tachycardia [Unknown]
  - Atrioventricular block complete [Unknown]
  - Angina unstable [Unknown]
